APPROVED DRUG PRODUCT: HALDRONE
Active Ingredient: PARAMETHASONE ACETATE
Strength: 1MG
Dosage Form/Route: TABLET;ORAL
Application: N012772 | Product #005
Applicant: ELI LILLY AND CO
Approved: Approved Prior to Jan 1, 1982 | RLD: No | RS: No | Type: DISCN